FAERS Safety Report 8551579-X (Version None)
Quarter: 2012Q3

REPORT INFORMATION
  Report Type: 
  Country: None (occurrence: None)
  Receive Date: 20120730
  Receipt Date: 20120720
  Transmission Date: 20120928
  Serious: Yes (Other)
  Sender: FDA-Public Use
  Company Number: US-BAYER-2012-073406

PATIENT
  Age: 17 Year
  Sex: Female
  Weight: 72.562 kg

DRUGS (11)
  1. GLUCOPHAGE [Concomitant]
     Dosage: 500 MG, BID
     Dates: start: 20080328
  2. APAP W/ CODEINE [Concomitant]
  3. SIMVASTATIN [Concomitant]
     Dosage: 20 MG, UNK
     Dates: start: 20080701
  4. YAZ [Suspect]
     Dosage: UNK
  5. ZANTAC [Concomitant]
     Dosage: 300 MG, BID
  6. IBUPROFEN [Concomitant]
     Indication: PAIN IN EXTREMITY
     Dosage: UNK
     Dates: start: 20080627
  7. TYLENOL W/ CODEINE NO. 3 [Concomitant]
     Indication: ABDOMINAL PAIN
     Dosage: 300-30 MG
     Dates: start: 20080512
  8. RANITIDINE [Concomitant]
     Dosage: 150 MG, UNK
     Dates: start: 20080516
  9. VICODIN [Concomitant]
     Indication: PAIN
     Dosage: UNK
     Dates: start: 20080513
  10. CIPROFLOXACIN HCL [Concomitant]
     Dosage: 500 MG, UNK
     Dates: start: 20080512
  11. DICLOFENAC [Concomitant]
     Dosage: 75 MG, BID
     Dates: start: 20080516

REACTIONS (1)
  - DEEP VEIN THROMBOSIS [None]
